FAERS Safety Report 6690450-5 (Version None)
Quarter: 2010Q2

REPORT INFORMATION
  Report Type: 
  Country: None (occurrence: None)
  Receive Date: 20100421
  Receipt Date: 20100113
  Transmission Date: 20101027
  Serious: No
  Sender: FDA-Public Use
  Company Number: US-ASTRAZENECA-2010SE01597

PATIENT
  Sex: Male

DRUGS (2)
  1. CASODEX [Suspect]
     Indication: PROSTATE CANCER
     Route: 048
     Dates: end: 20090601
  2. LUPRON [Concomitant]
     Indication: PROSTATE CANCER

REACTIONS (3)
  - HYPOTONIA [None]
  - INCONTINENCE [None]
  - MYALGIA [None]
